FAERS Safety Report 5335726-9 (Version None)
Quarter: 2007Q2

REPORT INFORMATION
  Report Type: 
  Country: None (occurrence: None)
  Receive Date: 20070322
  Receipt Date: 20061221
  Transmission Date: 20071010
  Serious: No
  Sender: FDA-Public Use
  Company Number: 2007US000038

PATIENT
  Age: 85 Year
  Sex: Female

DRUGS (9)
  1. VESICARE [Suspect]
     Indication: BLADDER OPERATION
     Dosage: 10 MG, ORAL
     Route: 048
  2. COZAAR [Concomitant]
  3. THYROXIN (LEVOTHYROXINE SODIUM) [Concomitant]
  4. HYDRALAZINE HCL [Concomitant]
  5. TOPROL-XL [Concomitant]
  6. PREMARIN [Concomitant]
  7. MULTIVITAMIN (VITAMIN NOS) [Concomitant]
  8. NORVASC [Concomitant]
  9. WARFARIN SODIUM [Concomitant]

REACTIONS (1)
  - CONSTIPATION [None]
